FAERS Safety Report 8585685-0 (Version None)
Quarter: 2012Q3

REPORT INFORMATION
  Report Type: 
  Country: None (occurrence: None)
  Receive Date: 20120810
  Receipt Date: 20120804
  Transmission Date: 20120928
  Serious: Yes (Hospitalization)
  Sender: FDA-Public Use
  Company Number: US-PFIZER INC-2012190822

PATIENT
  Age: 36 Year
  Sex: Male

DRUGS (1)
  1. DILANTIN-125 [Suspect]
     Dosage: 300 MG/DAY

REACTIONS (7)
  - LUNG DISORDER [None]
  - ASPARTATE AMINOTRANSFERASE INCREASED [None]
  - PYREXIA [None]
  - INTERSTITIAL LUNG DISEASE [None]
  - DRUG HYPERSENSITIVITY [None]
  - RASH GENERALISED [None]
  - LYMPHADENOPATHY [None]
